FAERS Safety Report 4628352-8 (Version None)
Quarter: 2005Q2

REPORT INFORMATION
  Report Type: 
  Country: None (occurrence: None)
  Receive Date: 20050406
  Receipt Date: 20050328
  Transmission Date: 20051028
  Serious: Yes (Death)
  Sender: FDA-Public Use
  Company Number: US-NOVOPROD-243158

PATIENT
  Age: 39 Year
  Sex: Female

DRUGS (1)
  1. NOVOSEVEN [Suspect]
     Indication: COAGULOPATHY
     Dosage: 3.6 MG, UNK

REACTIONS (2)
  - CONCOMITANT DISEASE PROGRESSION [None]
  - DEATH [None]
